FAERS Safety Report 18474217 (Version 1)
Quarter: 2020Q4

REPORT INFORMATION
  Report Type: Spontaneous
  Country: AR (occurrence: AR)
  Receive Date: 20201106
  Receipt Date: 20201106
  Transmission Date: 20210114
  Serious: Yes (Other)
  Sender: FDA-Public Use
  Company Number: AR-PFIZER INC-2020429395

PATIENT
  Age: 73 Year
  Sex: Female

DRUGS (1)
  1. IBRANCE [Suspect]
     Active Substance: PALBOCICLIB
     Indication: BREAST CANCER METASTATIC
     Dosage: 125 MG, DAILY (SCHEME 3X1)
     Dates: start: 20180424

REACTIONS (6)
  - Nodule [Unknown]
  - Food aversion [Unknown]
  - Eating disorder [Unknown]
  - Neoplasm progression [Unknown]
  - Breast injury [Unknown]
  - Skin laceration [Unknown]

NARRATIVE: CASE EVENT DATE: 202009
